FAERS Safety Report 9225228 (Version 1)
Quarter: 2013Q2

REPORT INFORMATION
  Report Type: Spontaneous
  Country: AU (occurrence: AU)
  Receive Date: 20130411
  Receipt Date: 20130411
  Transmission Date: 20140414
  Serious: Yes (Other)
  Sender: FDA-Public Use
  Company Number: PHHY2013AU034585

PATIENT
  Sex: Male

DRUGS (1)
  1. ACLASTA [Suspect]
     Dosage: UNK
     Route: 042
     Dates: start: 20120402

REACTIONS (3)
  - Giardiasis [Recovered/Resolved with Sequelae]
  - Diarrhoea [Recovered/Resolved with Sequelae]
  - Abdominal discomfort [Recovered/Resolved with Sequelae]
